FAERS Safety Report 8608484-X (Version None)
Quarter: 2012Q3

REPORT INFORMATION
  Report Type: 
  Country: None (occurrence: None)
  Receive Date: 20120821
  Receipt Date: 20120816
  Transmission Date: 20120928
  Serious: Yes (Hospitalization)
  Sender: FDA-Public Use
  Company Number: CN-BAYER-2012-085598

PATIENT
  Age: 46 Year
  Sex: Male

DRUGS (3)
  1. ASPIRIN [Suspect]
  2. METOPROLOL TARTRATE [Concomitant]
  3. ISOSORBIDE MONONITRATE [Concomitant]

REACTIONS (2)
  - DEVICE MISUSE [None]
  - OROPHARYNGEAL PAIN [None]
